FAERS Safety Report 4749482-6 (Version None)
Quarter: 2005Q3

REPORT INFORMATION
  Report Type: 
  Country: None (occurrence: None)
  Receive Date: 20050822
  Receipt Date: 20050414
  Transmission Date: 20060218
  Serious: Yes (Hospitalization)
  Sender: FDA-Public Use
  Company Number: 2005AP02329

PATIENT
  Age: 19004 Day
  Sex: Male

DRUGS (32)
  1. IRESSA [Suspect]
     Indication: HYPOPHARYNGEAL CANCER
     Dosage: CONCOMITANT PHASE -DOSE FORGOTTEN ON 08 MARCH 2005
     Route: 048
     Dates: start: 20050217, end: 20050308
  2. IRESSA [Suspect]
     Dosage: CONCOMITANT PHASE -DOSE FORGOTTEN ON 25 MARCH 2005
     Route: 048
     Dates: start: 20050309, end: 20050325
  3. IRESSA [Suspect]
     Dosage: CONCOMITANT PHASE
     Route: 048
     Dates: start: 20050326, end: 20050101
  4. IRESSA [Suspect]
     Dosage: CONCOMITANT PHASE -DOSE FORGOTTON ON ONE UNKNOWN DATE
     Route: 048
     Dates: end: 20050415
  5. CISPLATIN [Suspect]
     Indication: HYPOPHARYNGEAL CANCER
     Route: 042
     Dates: start: 20050227, end: 20050227
  6. CISPLATIN [Suspect]
     Route: 042
     Dates: start: 20050321, end: 20050321
  7. RADIOTHERAPY [Suspect]
     Indication: HYPOPHARYNGEAL CANCER
     Dosage: 2 GY EACH DAY WEEK TWO
     Dates: start: 20050228, end: 20050304
  8. RADIOTHERAPY [Suspect]
     Dosage: 2 GY EACH DAY WEEK THREE
     Dates: start: 20050307, end: 20050311
  9. RADIOTHERAPY [Suspect]
     Dosage: 2 GY EACH DAY WEEK FOUR
     Dates: start: 20050314, end: 20050318
  10. RADIOTHERAPY [Suspect]
     Dosage: 2 GY EACH DAY WEEK FIVE
     Dates: start: 20050321, end: 20050325
  11. RADIOTHERAPY [Suspect]
     Dosage: 4 GY
     Dates: start: 20050329, end: 20050329
  12. RADIOTHERAPY [Suspect]
     Dosage: 2 GY EACH DAY WEEK SIX
     Dates: start: 20050330, end: 20050401
  13. RADIOTHERAPY [Suspect]
     Dosage: 2 GY EACH DAY WEEK SEVEN
     Dates: start: 20050404, end: 20050408
  14. RADIOTHERAPY [Suspect]
     Dosage: 2 GY EACH DAY WEEK EIGHT
     Dates: start: 20050411, end: 20050415
  15. XANAX [Concomitant]
     Indication: ANXIETY
     Route: 048
     Dates: start: 20041201
  16. LYSANXIA [Concomitant]
     Indication: ANXIETY
     Route: 048
     Dates: start: 20050205
  17. DAFALGAN CODEINE [Concomitant]
     Indication: PAIN
     Route: 048
  18. ACETAMINOPHEN [Concomitant]
     Indication: PAIN
     Route: 048
  19. ACETAMINOPHEN [Concomitant]
     Indication: PAIN
     Route: 048
     Dates: start: 19800101, end: 20050314
  20. ACETAMINOPHEN [Concomitant]
     Route: 048
     Dates: start: 20050413
  21. AUGMENTIN '125' [Concomitant]
     Route: 048
     Dates: start: 20050308, end: 20050315
  22. COLCHICINE [Concomitant]
     Indication: GOUT
     Route: 048
     Dates: start: 20050308, end: 20050406
  23. OMEPRAZOLE [Concomitant]
     Indication: ANTACID THERAPY
     Route: 048
  24. ISOBETADINE [Concomitant]
     Indication: BALNEOTHERAPY
     Dates: start: 20050314
  25. KLINOTAB [Concomitant]
     Indication: DERMATITIS ACNEIFORM
     Dates: start: 20050301, end: 20050323
  26. KLINOTAB [Concomitant]
     Route: 048
     Dates: start: 20050323
  27. FUCIDINE CAP [Concomitant]
     Indication: DERMATITIS ACNEIFORM
     Dates: start: 20050301
  28. ZYRTEC [Concomitant]
     Indication: DERMATITIS ACNEIFORM
     Dates: start: 20050314
  29. CIPROFLOXACIN [Concomitant]
     Route: 048
     Dates: start: 20050310, end: 20050315
  30. IMODIUM [Concomitant]
     Indication: DIARRHOEA
     Dates: start: 20050101
  31. APRANAX [Concomitant]
     Dates: start: 20050406
  32. EOSINE [Concomitant]
     Indication: DERMATITIS
     Route: 061
     Dates: start: 20050406

REACTIONS (3)
  - ADVERSE EVENT [None]
  - DRUG DOSE OMISSION [None]
  - RENAL FAILURE [None]
